FAERS Safety Report 5927506-8 (Version None)
Quarter: 2008Q4

REPORT INFORMATION
  Report Type: 
  Country: None (occurrence: None)
  Receive Date: 20081023
  Receipt Date: 20080219
  Transmission Date: 20090506
  Serious: No
  Sender: FDA-Public Use
  Company Number: US-KINGPHARMUSA00001-K200800223

PATIENT

DRUGS (1)
  1. MENEST [Suspect]

REACTIONS (1)
  - RASH [None]
